FAERS Safety Report 8343815-X (Version None)
Quarter: 2012Q2

REPORT INFORMATION
  Report Type: 
  Country: None (occurrence: None)
  Receive Date: 20120508
  Receipt Date: 20120501
  Transmission Date: 20120825
  Serious: Yes (Other)
  Sender: FDA-Public Use
  Company Number: US-BAYER-2012-002903

PATIENT
  Age: 32 Year
  Sex: Female
  Weight: 67.12 kg

DRUGS (15)
  1. YAZ [Suspect]
     Indication: PREMENSTRUAL SYNDROME
     Dosage: UNK
     Dates: start: 20080101, end: 20090101
  2. ALBUTEROL [Concomitant]
  3. IPRATROPIUM BROMIDE [Concomitant]
  4. PROZAC [Concomitant]
     Dosage: UNK
     Dates: start: 20010101
  5. ZOLPIDEM [Concomitant]
     Dosage: UNK
     Dates: start: 20080101
  6. CLONAZEPAM [Concomitant]
     Dosage: UNK
     Dates: start: 20080101
  7. PERCOCET [Concomitant]
  8. COMPAZINE [Concomitant]
  9. REGLAN [Concomitant]
  10. COMPLEMENT C1 ESTERASE INHIBITOR [Concomitant]
  11. AMITRIPTYLINE HCL [Concomitant]
     Dosage: UNK
     Dates: start: 20080101
  12. YASMIN [Suspect]
     Indication: PREMENSTRUAL SYNDROME
     Dosage: UNK
     Dates: start: 20080101, end: 20090101
  13. ALBUTEROL [Concomitant]
  14. ASPIRIN [Concomitant]
  15. SINGULAIR [Concomitant]

REACTIONS (5)
  - MUSCULOSKELETAL PAIN [None]
  - FEAR OF DISEASE [None]
  - DEEP VEIN THROMBOSIS [None]
  - VARICOSE VEIN [None]
  - PAIN [None]
